FAERS Safety Report 5725075-9 (Version None)
Quarter: 2008Q2

REPORT INFORMATION
  Report Type: 
  Country: None (occurrence: None)
  Receive Date: 20080501
  Receipt Date: 20080418
  Transmission Date: 20081010
  Serious: Yes (Hospitalization)
  Sender: FDA-Public Use
  Company Number: US-AMGEN-QUU275405

PATIENT
  Sex: Male

DRUGS (2)
  1. ENBREL [Suspect]
     Indication: RHEUMATOID ARTHRITIS
     Route: 058
     Dates: start: 19990101
  2. METHOTREXATE [Concomitant]
     Route: 048
     Dates: start: 19990101

REACTIONS (4)
  - BRONCHITIS [None]
  - CHEST DISCOMFORT [None]
  - CORONARY ARTERY BYPASS [None]
  - RHEUMATOID ARTHRITIS [None]
